FAERS Safety Report 16370630 (Version 2)
Quarter: 2019Q2

REPORT INFORMATION
  Report Type: Spontaneous
  Country: FR (occurrence: FR)
  Receive Date: 20190530
  Receipt Date: 20190617
  Transmission Date: 20190711
  Serious: Yes (Other)
  Sender: FDA-Public Use
  Company Number: FR-ACCORD-129931

PATIENT
  Age: 71 Year
  Sex: Male
  Weight: 88 kg

DRUGS (4)
  1. PACLITAXEL ACCORD [Suspect]
     Active Substance: PACLITAXEL
     Indication: BLADDER TRANSITIONAL CELL CARCINOMA RECURRENT
     Route: 042
     Dates: start: 20181129
  2. GEMCITABINE SANDOZ [Suspect]
     Active Substance: GEMCITABINE\GEMCITABINE HYDROCHLORIDE
     Indication: BLADDER TRANSITIONAL CELL CARCINOMA RECURRENT
     Route: 042
     Dates: start: 20180221, end: 20180604
  3. CARBOPLATIN HOSPIRA [Suspect]
     Active Substance: CARBOPLATIN
     Indication: BLADDER TRANSITIONAL CELL CARCINOMA RECURRENT
     Dosage: AUC 5 CALVERT
     Route: 042
     Dates: start: 20180221, end: 20180530
  4. GEMCITABINE [Suspect]
     Active Substance: GEMCITABINE\GEMCITABINE HYDROCHLORIDE
     Indication: BLADDER TRANSITIONAL CELL CARCINOMA RECURRENT
     Route: 042
     Dates: start: 20180221, end: 20180412

REACTIONS (2)
  - Scleroderma-like reaction [Not Recovered/Not Resolved]
  - Off label use [Unknown]

NARRATIVE: CASE EVENT DATE: 20181228
